FAERS Safety Report 6748186-8 (Version None)
Quarter: 2010Q2

REPORT INFORMATION
  Report Type: 
  Country: None (occurrence: None)
  Receive Date: 20100531
  Receipt Date: 20100526
  Transmission Date: 20101027
  Serious: Yes (Death)
  Sender: FDA-Public Use
  Company Number: PHHY2010BR34227

PATIENT
  Sex: Male

DRUGS (2)
  1. EXELON [Suspect]
     Dosage: 6 MG, UNK
  2. RISPERIDONE [Suspect]
     Dosage: 2 MG, UNK

REACTIONS (1)
  - DEATH [None]
